FAERS Safety Report 12092514 (Version 1)
Quarter: 2016Q1

REPORT INFORMATION
  Report Type: Spontaneous
  Country: US (occurrence: US)
  Receive Date: 20160219
  Receipt Date: 20160219
  Transmission Date: 20160526
  Serious: Yes (Other)
  Sender: FDA-Public Use
  Company Number: US-CIPLA LTD.-2016US01184

PATIENT

DRUGS (3)
  1. CISPLATIN. [Suspect]
     Active Substance: CISPLATIN
     Indication: TRANSITIONAL CELL CARCINOMA
     Dosage: 70 MG/M2 OVER 60 MINUTES ON DAY 1, EACH 21-DAY TREATMENT CYCLE
     Route: 042
  2. GEMCITABINE [Suspect]
     Active Substance: GEMCITABINE\GEMCITABINE HYDROCHLORIDE
     Indication: TRANSITIONAL CELL CARCINOMA
     Dosage: 1,000 MG/M2 OVER 30 MINUTES ON DAYS 1 AND 8, EACH 21-DAY TREATMENT CYCLE
     Route: 042
  3. BEVACIZUMAB [Suspect]
     Active Substance: BEVACIZUMAB
     Indication: TRANSITIONAL CELL CARCINOMA
     Dosage: 15 MG/KG OVER 30 MINUTES (90 MINUTES FOR CYCLE 1 ONLY) ON DAY 1, OF EACH 21-DAY TREATMENT CYCLE
     Route: 042

REACTIONS (1)
  - Angiopathy [Unknown]
